FAERS Safety Report 6058799-7 (Version None)
Quarter: 2009Q1

REPORT INFORMATION
  Report Type: 
  Country: None (occurrence: None)
  Receive Date: 20090130
  Receipt Date: 20090128
  Transmission Date: 20090719
  Serious: Yes (Life-Threatening, Other)
  Sender: FDA-Public Use
  Company Number: CA-ASTRAZENECA-2009UW02573

PATIENT
  Age: 53 Year
  Sex: Male

DRUGS (1)
  1. XYLOCAINE [Suspect]
     Route: 061

REACTIONS (1)
  - METHAEMOGLOBINAEMIA [None]
